FAERS Safety Report 14626424 (Version 1)
Quarter: 2018Q1

REPORT INFORMATION
  Report Type: Report from Study
  Country: US (occurrence: US)
  Receive Date: 20180312
  Receipt Date: 20180312
  Transmission Date: 20180509
  Serious: Yes (Hospitalization)
  Sender: FDA-Public Use
  Company Number: PHHO2018US003278

PATIENT
  Age: 57 Year
  Sex: Female
  Weight: 54.6 kg

DRUGS (1)
  1. KISQALI [Suspect]
     Active Substance: RIBOCICLIB
     Indication: BREAST CANCER
     Dosage: 200 MG, UNK
     Route: 048
     Dates: start: 20160913, end: 20171106

REACTIONS (1)
  - Viral infection [Not Recovered/Not Resolved]

NARRATIVE: CASE EVENT DATE: 20171107
